FAERS Safety Report 25113409 (Version 1)
Quarter: 2025Q1

REPORT INFORMATION
  Report Type: Spontaneous
  Country: JP (occurrence: JP)
  Receive Date: 20250324
  Receipt Date: 20250324
  Transmission Date: 20250409
  Serious: Yes (Other)
  Sender: TEVA
  Company Number: JP-TEVA-VS-3311081

PATIENT
  Age: 53 Year
  Sex: Female

DRUGS (10)
  1. IRINOTECAN [Suspect]
     Active Substance: IRINOTECAN
     Indication: Mixed adenoneuroendocrine carcinoma
     Route: 065
     Dates: start: 202204
  2. DURVALUMAB [Suspect]
     Active Substance: DURVALUMAB
     Indication: Mixed adenoneuroendocrine carcinoma
     Route: 065
     Dates: start: 202311
  3. ETOPOSIDE [Suspect]
     Active Substance: ETOPOSIDE
     Indication: Mixed adenoneuroendocrine carcinoma
     Route: 065
  4. CISPLATIN [Suspect]
     Active Substance: CISPLATIN
     Indication: Mixed adenoneuroendocrine carcinoma
     Route: 065
     Dates: start: 202311
  5. CISPLATIN [Suspect]
     Active Substance: CISPLATIN
     Indication: Mixed adenoneuroendocrine carcinoma
     Route: 065
  6. CISPLATIN [Suspect]
     Active Substance: CISPLATIN
     Indication: Mixed adenoneuroendocrine carcinoma
     Route: 065
     Dates: start: 202204
  7. GIMERACIL\OTERACIL\TEGAFUR [Suspect]
     Active Substance: GIMERACIL\OTERACIL POTASSIUM\TEGAFUR
     Indication: Mixed adenoneuroendocrine carcinoma
     Route: 048
  8. GEMCITABINE [Suspect]
     Active Substance: GEMCITABINE
     Indication: Mixed adenoneuroendocrine carcinoma
     Route: 065
     Dates: start: 202406
  9. GEMCITABINE [Suspect]
     Active Substance: GEMCITABINE
     Indication: Mixed adenoneuroendocrine carcinoma
     Route: 065
     Dates: start: 202311
  10. CARBOPLATIN [Suspect]
     Active Substance: CARBOPLATIN
     Indication: Mixed adenoneuroendocrine carcinoma
     Route: 065
     Dates: start: 202406

REACTIONS (2)
  - Drug ineffective [Unknown]
  - Fatigue [Unknown]
